FAERS Safety Report 18555659 (Version 2)
Quarter: 2021Q1

REPORT INFORMATION
  Report Type: Spontaneous
  Country: JP (occurrence: JP)
  Receive Date: 20201127
  Receipt Date: 20210101
  Transmission Date: 20210419
  Serious: Yes (Hospitalization)
  Sender: FDA-Public Use
  Company Number: JP-ASTRAZENECA-2019SF78420

PATIENT
  Age: 65 Year
  Sex: Male
  Weight: 67 kg

DRUGS (1)
  1. IMFINZI [Suspect]
     Active Substance: DURVALUMAB
     Indication: NON-SMALL CELL LUNG CANCER
     Route: 041
     Dates: start: 20191029, end: 20191112

REACTIONS (1)
  - Radiation pneumonitis [Recovered/Resolved with Sequelae]

NARRATIVE: CASE EVENT DATE: 20191126
